FAERS Safety Report 4333476-9 (Version None)
Quarter: 2004Q2

REPORT INFORMATION
  Report Type: 
  Country: None (occurrence: None)
  Receive Date: 20040401
  Receipt Date: 20040316
  Transmission Date: 20050107
  Serious: Yes (Hospitalization)
  Sender: FDA-Public Use
  Company Number: 7677

PATIENT
  Age: 64 Year
  Sex: Female

DRUGS (17)
  1. METHOTREXATE [Suspect]
     Indication: RHEUMATOID ARTHRITIS
     Dosage: 25 MG WEEKLY SC
     Route: 058
     Dates: start: 20020218, end: 20040212
  2. ENBREL [Suspect]
     Indication: RHEUMATOID ARTHRITIS
     Dosage: 25 MG 2/WK
     Dates: start: 20021017, end: 20040212
  3. PLAQUENIL [Concomitant]
  4. PRILOSEC [Concomitant]
  5. NEURONTIN [Concomitant]
  6. PREDNISONE [Concomitant]
  7. ZOLOFT [Concomitant]
  8. FOLIC ACID [Concomitant]
  9. VITAMIN C WITH ROSE HIPS [Concomitant]
  10. OS-CAL [Concomitant]
  11. MULTIVITAMIN [Concomitant]
  12. BIOTIN [Concomitant]
  13. GLUCOSAMINE [Concomitant]
  14. HORSE CHESTNUT [Concomitant]
  15. BELLERGAL [Concomitant]
  16. LEUCOVORIN CALCIUM [Concomitant]
  17. VIOXX [Concomitant]

REACTIONS (7)
  - ADRENAL INSUFFICIENCY [None]
  - ESCHERICHIA BACTERAEMIA [None]
  - HYPOTENSION [None]
  - LEUKOCYTOSIS [None]
  - NAUSEA [None]
  - RETCHING [None]
  - URINARY TRACT INFECTION [None]
